FAERS Safety Report 7348077-8 (Version None)
Quarter: 2011Q1

REPORT INFORMATION
  Report Type: 
  Country: None (occurrence: None)
  Receive Date: 20110311
  Receipt Date: 20110228
  Transmission Date: 20110831
  Serious: Yes (Hospitalization)
  Sender: FDA-Public Use
  Company Number: JP-PFIZER INC-2011032253

PATIENT
  Age: 39 Year
  Sex: Female

DRUGS (4)
  1. MUCOSTA [Concomitant]
     Dosage: UNKNOWN
     Route: 048
  2. MYONAL [Concomitant]
     Dosage: UNKNOWN
     Route: 048
  3. SENNARIDE [Concomitant]
  4. CELECOX [Suspect]
     Indication: CERVICOBRACHIAL SYNDROME
     Dosage: 100 MG, UNK
     Route: 048
     Dates: start: 20101101, end: 20101219

REACTIONS (4)
  - RASH [None]
  - WHITE BLOOD CELL COUNT INCREASED [None]
  - HEPATIC FUNCTION ABNORMAL [None]
  - PYREXIA [None]
